FAERS Safety Report 19864926 (Version 2)
Quarter: 2021Q4

REPORT INFORMATION
  Report Type: Spontaneous
  Country: FR (occurrence: FR)
  Receive Date: 20210921
  Receipt Date: 20211012
  Transmission Date: 20220304
  Serious: Yes (Other)
  Sender: FDA-Public Use
  Company Number: FR-PHARMAMAR-2021PM000391

PATIENT
  Age: 72 Year
  Sex: Female

DRUGS (3)
  1. ZEPZELCA [Suspect]
     Active Substance: LURBINECTEDIN
     Indication: Small cell lung cancer
     Dosage: 4 MILLIGRAM (CYCLES 1 AND 2)
     Route: 042
     Dates: start: 20210512, end: 20210617
  2. ZEPZELCA [Suspect]
     Active Substance: LURBINECTEDIN
     Dosage: 3.9 MILLIGRAM
     Route: 042
     Dates: start: 20210708, end: 20210708
  3. INVESTIGATIONAL PRODUCT [Suspect]
     Active Substance: INVESTIGATIONAL PRODUCT
     Indication: Small cell lung cancer
     Dosage: UNK
     Dates: start: 20210909

REACTIONS (3)
  - Thrombocytopenia [Unknown]
  - Neutropenia [Unknown]
  - Anaemia [Unknown]
